FAERS Safety Report 14391868 (Version 1)
Quarter: 2018Q1

REPORT INFORMATION
  Report Type: Spontaneous
  Country: FR (occurrence: FR)
  Receive Date: 20180116
  Receipt Date: 20180116
  Transmission Date: 20180509
  Serious: Yes (Death)
  Sender: FDA-Public Use
  Company Number: FR-JNJFOC-20180117144

PATIENT
  Sex: Male

DRUGS (5)
  1. METHOTREXATE SODIUM. [Suspect]
     Active Substance: METHOTREXATE SODIUM
     Indication: OSTEOSARCOMA
     Dosage: IN 1L OF 5PER CENT  DEXTROSE IN WATER WITH 1MEQ/KG OF SODIUM BICARBONATE GIVEN AS 4H INFUSION ON D1
     Route: 065
  2. IFOSFAMIDE. [Suspect]
     Active Substance: IFOSFAMIDE
     Indication: OSTEOSARCOMA
     Dosage: OVER 3 H IN 250-500 ML IN SALINE SERUM FOR 4 DAYS
     Route: 065
  3. DOXORUBICIN HYDROCHLORIDE. [Suspect]
     Active Substance: DOXORUBICIN HYDROCHLORIDE
     Indication: OSTEOSARCOMA
     Dosage: OVER 6 H IN 250 ML 5PER CENT GLUCOSE WAS GIVEN DAILY THE FIRST TWO DAYS
     Route: 065
  4. CISPLATIN. [Suspect]
     Active Substance: CISPLATIN
     Indication: OSTEOSARCOMA
     Dosage: OVER 4 H IN 250 ML SALINE SERUM ONCE ON DAY TWO AFTER THE END OF DOXORUBICIN
     Route: 065
  5. ETOPOSIDE. [Suspect]
     Active Substance: ETOPOSIDE
     Indication: OSTEOSARCOMA
     Dosage: OVER 1 H IN 250-500 ML SALINE SERUM FOR 4 DAYS
     Route: 065

REACTIONS (3)
  - Product use in unapproved indication [Unknown]
  - Toxicity to various agents [Fatal]
  - Off label use [Unknown]
